FAERS Safety Report 17144368 (Version 2)
Quarter: 2019Q4

REPORT INFORMATION
  Report Type: Report from Study
  Country: US (occurrence: US)
  Receive Date: 20191212
  Receipt Date: 20191230
  Transmission Date: 20200122
  Serious: Yes (Death, Life-Threatening, Hospitalization)
  Sender: FDA-Public Use
  Company Number: NVSC2019US020434

PATIENT
  Age: 70 Year
  Sex: Female
  Weight: 81.18 kg

DRUGS (4)
  1. TRAMETINIB [Suspect]
     Active Substance: TRAMETINIB
     Dosage: 2 MG, QD
     Route: 050
     Dates: start: 20191021
  2. TRAMETINIB [Suspect]
     Active Substance: TRAMETINIB
     Indication: ANAPLASTIC THYROID CANCER
     Dosage: 2 MG, QD
     Route: 050
     Dates: start: 20190716
  3. DABRAFENIB [Suspect]
     Active Substance: DABRAFENIB
     Indication: ANAPLASTIC THYROID CANCER
     Dosage: 150 MG, BID
     Route: 065
     Dates: start: 20190716
  4. DABRAFENIB [Suspect]
     Active Substance: DABRAFENIB
     Dosage: 150 MG, BID
     Route: 065
     Dates: start: 20191021

REACTIONS (3)
  - Malignant neoplasm progression [Unknown]
  - Pharyngeal fistula [Fatal]
  - Anaplastic thyroid cancer [Unknown]

NARRATIVE: CASE EVENT DATE: 20191021
